FAERS Safety Report 4906447-9 (Version None)
Quarter: 2006Q1

REPORT INFORMATION
  Report Type: 
  Country: None (occurrence: None)
  Receive Date: 20060209
  Receipt Date: 20060203
  Transmission Date: 20060701
  Serious: Yes (Other)
  Sender: FDA-Public Use
  Company Number: US-BRISTOL-MYERS SQUIBB COMPANY-13273149

PATIENT
  Sex: Female

DRUGS (1)
  1. ERBITUX [Suspect]
     Dosage: 4TH DOSE. STOPPED AFTER 6 MINUTES.
     Route: 042
     Dates: start: 20060203, end: 20060203

REACTIONS (4)
  - DYSPNOEA [None]
  - HYPOTENSION [None]
  - OXYGEN SATURATION DECREASED [None]
  - SKIN DISCOLOURATION [None]
